FAERS Safety Report 9341579 (Version 1)
Quarter: 2013Q2

REPORT INFORMATION
  Report Type: Report from Study
  Country: BR (occurrence: BR)
  Receive Date: 20130611
  Receipt Date: 20130611
  Transmission Date: 20140414
  Serious: Yes (Other)
  Sender: FDA-Public Use
  Company Number: PHHY2013BR041782

PATIENT
  Sex: Female
  Weight: 63 kg

DRUGS (3)
  1. ACLASTA [Suspect]
     Indication: OSTEOPOROSIS
     Dosage: 5 MG/100 ML, 1 APPLICATION ONCE A YEAR
     Route: 042
  2. CALCIUM D3                         /00944201/ [Concomitant]
     Indication: OSTEOPOROSIS
     Dosage: 1 TABLET DAILY
     Route: 048
  3. MULTIVITAMIN//VITAMINS NOS [Concomitant]
     Dosage: 1 TABLET AFTER MEALS

REACTIONS (8)
  - Dengue fever [Recovered/Resolved]
  - Pyrexia [Recovered/Resolved]
  - Asthenia [Recovered/Resolved]
  - Decreased appetite [Recovered/Resolved]
  - Headache [Recovered/Resolved]
  - Weight decreased [Recovered/Resolved]
  - Abdominal pain upper [Recovering/Resolving]
  - Pain in extremity [Not Recovered/Not Resolved]
